FAERS Safety Report 22660182 (Version 1)
Quarter: 2023Q2

REPORT INFORMATION
  Report Type: Spontaneous
  Country: KR (occurrence: KR)
  Receive Date: 20230630
  Receipt Date: 20230630
  Transmission Date: 20230721
  Serious: Yes (Other)
  Sender: FDA-Public Use
  Company Number: KR-MYLANLABS-2023M1067939

PATIENT
  Age: 84 Year
  Sex: Male

DRUGS (2)
  1. CELEBREX [Suspect]
     Active Substance: CELECOXIB
     Indication: Conus medullaris syndrome
     Dosage: 200 MILLIGRAM, QD
     Route: 065
     Dates: start: 20220217
  2. TEICOPLANIN [Suspect]
     Active Substance: TEICOPLANIN
     Indication: Conus medullaris syndrome
     Dosage: 600 MILLIGRAM, QD
     Route: 065
     Dates: start: 20220225, end: 20220308

REACTIONS (2)
  - Leukopenia [Recovering/Resolving]
  - Off label use [Unknown]

NARRATIVE: CASE EVENT DATE: 20220217
